FAERS Safety Report 10145521 (Version 2)
Quarter: 2014Q2

REPORT INFORMATION
  Report Type: Spontaneous
  Country: US (occurrence: US)
  Receive Date: 20140501
  Receipt Date: 20140530
  Transmission Date: 20141212
  Serious: Yes (Other)
  Sender: FDA-Public Use
  Company Number: US-JNJFOC-20140418821

PATIENT
  Sex: Male
  Weight: 81.65 kg

DRUGS (3)
  1. XARELTO [Suspect]
     Indication: CEREBROVASCULAR ACCIDENT PROPHYLAXIS
     Route: 048
     Dates: start: 2011
  2. XARELTO [Suspect]
     Indication: ATRIAL FIBRILLATION
     Route: 048
     Dates: start: 2011
  3. AVAPRO [Concomitant]
     Indication: HYPERTENSION
     Route: 048

REACTIONS (3)
  - Prostate cancer [Not Recovered/Not Resolved]
  - Epistaxis [Not Recovered/Not Resolved]
  - Gingival bleeding [Not Recovered/Not Resolved]
